FAERS Safety Report 4327778-X (Version None)
Quarter: 2004Q1

REPORT INFORMATION
  Report Type: 
  Country: None (occurrence: None)
  Receive Date: 20040331
  Receipt Date: 20040312
  Transmission Date: 20041129
  Serious: Yes (Other)
  Sender: FDA-Public Use
  Company Number: 200410554DE

PATIENT
  Age: 58 Year
  Sex: Female

DRUGS (3)
  1. TRENTAL [Suspect]
     Route: 048
     Dates: start: 20040204, end: 20040209
  2. TRENTAL [Concomitant]
     Route: 041
     Dates: start: 20040210, end: 20040219
  3. NEUROTRAT [Concomitant]

REACTIONS (1)
  - RENAL PAIN [None]
